FAERS Safety Report 5078103-0 (Version None)
Quarter: 2006Q3

REPORT INFORMATION
  Report Type: 
  Country: None (occurrence: None)
  Receive Date: 20060720
  Receipt Date: 20060327
  Transmission Date: 20061208
  Serious: Yes (Other)
  Sender: FDA-Public Use
  Company Number: 2006MP000513

PATIENT
  Age: 66 Year
  Sex: Female

DRUGS (5)
  1. AGGRASTAT [Suspect]
     Indication: ANGINA PECTORIS
     Dosage: IV
     Route: 042
     Dates: start: 20060318
  2. AGGRASTAT [Suspect]
     Indication: TROPONIN INCREASED
     Dosage: IV
     Route: 042
     Dates: start: 20060318
  3. ASPIRIN [Concomitant]
  4. HEPARIN [Concomitant]
  5. NPH INSULIN [Concomitant]

REACTIONS (1)
  - MYOCARDIAL INFARCTION [None]
